FAERS Safety Report 6442420-X (Version None)
Quarter: 2009Q4

REPORT INFORMATION
  Report Type: 
  Country: None (occurrence: None)
  Receive Date: 20091112
  Receipt Date: 20091028
  Transmission Date: 20100525
  Serious: Yes (Hospitalization)
  Sender: FDA-Public Use
  Company Number: 2009AL006976

PATIENT
  Age: 23 Year
  Sex: Male

DRUGS (45)
  1. ZINC OXIDE OINTMENT USP (ALPHARMA) (ZINC OXIDE OINTMENT USP (ALPHARMA) [Suspect]
  2. VITAMIN E [Concomitant]
  3. ASCORBIC ACID [Concomitant]
  4. VITAMIN B6 [Concomitant]
  5. SELENIUM [Concomitant]
  6. CALCIUM GLUCONATE [Concomitant]
  7. VITAMIN A [Concomitant]
  8. CHROMIUM PICOLINATE [Concomitant]
  9. FOLIC ACID [Concomitant]
  10. MAGNESIUM CITRATE [Concomitant]
  11. CARNITENE [Concomitant]
  12. SIBERIAN GINSENG [Concomitant]
  13. COENZYME Q10 [Concomitant]
  14. CHROMIUM [Concomitant]
  15. RHODEOLA ROSEA [Concomitant]
  16. MAGNESIUM HYDROXIDE TAB [Concomitant]
  17. GREEN TEA EXTRACT [Concomitant]
  18. LIPEDIUM MEYENII [Concomitant]
  19. ECLIPTA ALBA [Concomitant]
  20. TINOSPORA [Concomitant]
  21. ELETTARIA CARDAMOMUM [Concomitant]
  22. WITHANIA SOMNIFERA [Concomitant]
  23. VITAMIN B 3 [Concomitant]
  24. ST. JOHN'S WORT [Concomitant]
  25. LACTOBACILLUS ACIDOPHILUS [Concomitant]
  26. RHODIOLA [Concomitant]
  27. GINSENG [Concomitant]
  28. HOODIA GORDONII [Concomitant]
  29. GUARANA [Concomitant]
  30. GINGER [Concomitant]
  31. BACOPA MONNIERA [Concomitant]
  32. HYDROCOYLE ASIATICA [Concomitant]
  33. COLA ACUMINATA [Concomitant]
  34. 5-HYDROZYTRYPTOPHAN [Concomitant]
  35. PSYLLIUM [Concomitant]
  36. CONJUGATED LINOLEIC [Concomitant]
  37. CALAMUS [Concomitant]
  38. THEOBROMINE [Concomitant]
  39. SUCROSE [Concomitant]
  40. S-ADENOSYL- 1-METHIONINE [Concomitant]
  41. ANIRACETAM [Concomitant]
  42. GLUCORONOLACTINE [Concomitant]
  43. 1-OCTACOSANOL [Concomitant]
  44. FUCOXANTHIN [Concomitant]
  45. BIFIDOBACTERIUM BIFIDUS [Concomitant]

REACTIONS (1)
  - MANIA [None]
